FAERS Safety Report 16431543 (Version 1)
Quarter: 2019Q3

REPORT INFORMATION
  Report Type: Spontaneous
  Country: US (occurrence: US)
  Receive Date: 20190613
  Receipt Date: 20190613
  Transmission Date: 20191004
  Serious: No
  Sender: FDA-Public Use
  Company Number: None

PATIENT
  Age: 51 Year
  Sex: Female

DRUGS (7)
  1. SPIRONOLACTONE. [Concomitant]
     Active Substance: SPIRONOLACTONE
  2. HYDROXYZINE [Concomitant]
     Active Substance: HYDROXYZINE HYDROCHLORIDE
  3. FLUCONAZOLE. [Concomitant]
     Active Substance: FLUCONAZOLE
  4. JADENU [Suspect]
     Active Substance: DEFERASIROX
     Route: 048
     Dates: start: 20180313, end: 20190613
  5. CIPROFLOXACIN. [Concomitant]
     Active Substance: CIPROFLOXACIN
  6. FUROSEMIDE. [Concomitant]
     Active Substance: FUROSEMIDE
  7. ELIQUIS [Concomitant]
     Active Substance: APIXABAN

REACTIONS (1)
  - Renal failure [None]

NARRATIVE: CASE EVENT DATE: 20190613
